FAERS Safety Report 16806024 (Version 1)
Quarter: 2019Q3

REPORT INFORMATION
  Report Type: Spontaneous
  Country: ES (occurrence: ES)
  Receive Date: 20190913
  Receipt Date: 20190913
  Transmission Date: 20191005
  Serious: Yes (Other)
  Sender: FDA-Public Use
  Company Number: ES-TEVA-2019-ES-1106145

PATIENT
  Sex: Female

DRUGS (1)
  1. COPAXONE [Suspect]
     Active Substance: GLATIRAMER ACETATE
     Indication: MULTIPLE SCLEROSIS
     Route: 058

REACTIONS (7)
  - Paraesthesia [Recovering/Resolving]
  - Limb discomfort [Recovering/Resolving]
  - Tooth infection [Unknown]
  - Arthropathy [Recovering/Resolving]
  - Nervousness [Recovering/Resolving]
  - Tooth extraction [Unknown]
  - Dental implantation [Unknown]

NARRATIVE: CASE EVENT DATE: 201909
